FAERS Safety Report 4611003-6 (Version None)
Quarter: 2005Q1

REPORT INFORMATION
  Report Type: 
  Country: None (occurrence: None)
  Receive Date: 20050316
  Receipt Date: 20050316
  Transmission Date: 20050727
  Serious: Yes (Hospitalization)
  Sender: FDA-Public Use
  Company Number: None

PATIENT
  Age: 60 Year
  Sex: Male
  Weight: 57.2 kg

DRUGS (5)
  1. DILANTIN [Suspect]
  2. ASPIRIN [Concomitant]
  3. RISPERIDONE [Concomitant]
  4. TOPIRAMATE [Concomitant]
  5. HYDROCHLORITHIAZIDE [Concomitant]

REACTIONS (1)
  - DRUG TOXICITY [None]
